FAERS Safety Report 5221385-2 (Version None)
Quarter: 2007Q1

REPORT INFORMATION
  Report Type: 
  Country: None (occurrence: None)
  Receive Date: 20070126
  Receipt Date: 20070116
  Transmission Date: 20070707
  Serious: Yes (Other)
  Sender: FDA-Public Use
  Company Number: JP-PFIZER INC-2007004685

PATIENT
  Age: 92 Year
  Sex: Male

DRUGS (6)
  1. ZYVOX [Suspect]
     Indication: PERITONITIS BACTERIAL
     Dosage: DAILY DOSE:600MG
     Route: 042
  2. SEVOFLURANE [Concomitant]
     Route: 042
  3. CATABON [Concomitant]
     Route: 042
  4. PROPOFOL [Concomitant]
     Route: 042
  5. ZANTAC [Concomitant]
     Route: 042
  6. FLUMARIN [Concomitant]
     Route: 042

REACTIONS (1)
  - TACHYCARDIA [None]
